FAERS Safety Report 13496318 (Version 2)
Quarter: 2017Q4

REPORT INFORMATION
  Report Type: Spontaneous
  Country: US (occurrence: US)
  Receive Date: 20170428
  Receipt Date: 20171207
  Transmission Date: 20180320
  Serious: No
  Sender: FDA-Public Use
  Company Number: US-ELI_LILLY_AND_COMPANY-US201704010006

PATIENT
  Age: 31 Year
  Sex: Female

DRUGS (6)
  1. HUMALOG [Suspect]
     Active Substance: INSULIN LISPRO
     Dosage: UNK
  2. HUMULIN N [Suspect]
     Active Substance: INSULIN HUMAN
     Dosage: 25 U, DAILY(AT BEDTIME)
     Route: 058
     Dates: start: 20170420
  3. HUMULIN N [Suspect]
     Active Substance: INSULIN HUMAN
     Indication: GESTATIONAL DIABETES
     Dosage: 48 U, QD(AT BREAKFAST)
     Route: 058
     Dates: start: 20170420
  4. HUMALOG [Suspect]
     Active Substance: INSULIN LISPRO
     Indication: GESTATIONAL DIABETES
     Dosage: 27 U, EACH MORNING
     Route: 058
     Dates: start: 20170420
  5. HUMALOG [Suspect]
     Active Substance: INSULIN LISPRO
     Dosage: 22 U, DAILY(EACH NIGHT)
     Route: 058
     Dates: start: 20170420
  6. HUMALOG [Suspect]
     Active Substance: INSULIN LISPRO
     Dosage: 27 U, DAILY(AFTERNOON)
     Route: 058
     Dates: start: 20170420

REACTIONS (1)
  - Maternal exposure during pregnancy [Unknown]
